FAERS Safety Report 4771049-4 (Version None)
Quarter: 2005Q3

REPORT INFORMATION
  Report Type: 
  Country: None (occurrence: None)
  Receive Date: 20050915
  Receipt Date: 20050912
  Transmission Date: 20060218
  Serious: Yes (Other)
  Sender: FDA-Public Use
  Company Number: PHBS2005US13365

PATIENT
  Age: 62 Year
  Sex: Male

DRUGS (3)
  1. ZOMETA [Suspect]
     Dosage: 4 MG, QMO
     Route: 042
     Dates: start: 20020901
  2. ESTRAMUSTINE [Concomitant]
     Route: 065
  3. VINORELBINE [Concomitant]
     Route: 065

REACTIONS (6)
  - ASEPTIC NECROSIS BONE [None]
  - BONE INFECTION [None]
  - EXCESSIVE GRANULATION TISSUE [None]
  - HYPERPLASIA [None]
  - IMPAIRED HEALING [None]
  - TOOTH EXTRACTION [None]
